FAERS Safety Report 12728957 (Version 1)
Quarter: 2016Q3

REPORT INFORMATION
  Report Type: Spontaneous
  Country: FR (occurrence: FR)
  Receive Date: 20160909
  Receipt Date: 20160909
  Transmission Date: 20161109
  Serious: Yes (Hospitalization)
  Sender: FDA-Public Use
  Company Number: FR-SA-2016SA162381

PATIENT
  Age: 87 Year
  Sex: Female

DRUGS (7)
  1. STILNOX [Suspect]
     Active Substance: ZOLPIDEM TARTRATE
     Indication: INSOMNIA
     Route: 048
  2. RYTHMODAN [Suspect]
     Active Substance: DISOPYRAMIDE
     Indication: ARRHYTHMIA
     Route: 048
     Dates: end: 201605
  3. FORTZAAR [Concomitant]
     Active Substance: HYDROCHLOROTHIAZIDE\LOSARTAN POTASSIUM
     Dosage: LONG-TERM TREATMENT
     Route: 048
  4. KARDEGIC [Concomitant]
     Active Substance: ASPIRIN LYSINE
     Dosage: LONG-TERM TREATMENT
     Route: 048
  5. PRAVASTATIN. [Concomitant]
     Active Substance: PRAVASTATIN
     Dosage: LONG-TERM TREATMENT
     Route: 048
  6. LEVOTHYROX [Concomitant]
     Active Substance: LEVOTHYROXINE
     Dosage: LONG-TERM TREATMENT
     Route: 048
  7. ICAZ [Concomitant]
     Active Substance: ISRADIPINE
     Dosage: LONG-TERM TREATMENT
     Route: 048

REACTIONS (3)
  - Sinus arrhythmia [Recovered/Resolved]
  - Dyspnoea [Recovering/Resolving]
  - Amnesia [Recovered/Resolved]

NARRATIVE: CASE EVENT DATE: 20160512
